FAERS Safety Report 17012316 (Version 1)
Quarter: 2019Q4

REPORT INFORMATION
  Report Type: Spontaneous
  Country: US (occurrence: US)
  Receive Date: 20191108
  Receipt Date: 20191108
  Transmission Date: 20200122
  Serious: Yes (Hospitalization)
  Sender: FDA-Public Use
  Company Number: US-ROCHE-2456096

PATIENT
  Age: 48 Year
  Sex: Female

DRUGS (1)
  1. XOLAIR [Suspect]
     Active Substance: OMALIZUMAB
     Indication: PRODUCT USED FOR UNKNOWN INDICATION
     Route: 065

REACTIONS (6)
  - Cardiac failure [Unknown]
  - Mastocytosis [Unknown]
  - Respiratory failure [Unknown]
  - Pneumonia [Unknown]
  - Asthma [Unknown]
  - Bronchospasm [Unknown]

NARRATIVE: CASE EVENT DATE: 20190625
